FAERS Safety Report 5819696-2 (Version None)
Quarter: 2008Q3

REPORT INFORMATION
  Report Type: 
  Country: None (occurrence: None)
  Receive Date: 20080723
  Receipt Date: 20080711
  Transmission Date: 20090109
  Serious: Yes (Hospitalization, Other)
  Sender: FDA-Public Use
  Company Number: FR-PFIZER INC-2008024276

PATIENT
  Sex: Female
  Weight: 82 kg

DRUGS (3)
  1. CHANTIX [Suspect]
     Indication: SMOKING CESSATION THERAPY
     Route: 048
     Dates: start: 20080124, end: 20080305
  2. EZETIMIBE [Concomitant]
     Route: 048
  3. BROMAZEPAM [Concomitant]
     Route: 048

REACTIONS (15)
  - ABNORMAL DREAMS [None]
  - ANXIETY [None]
  - DECREASED APPETITE [None]
  - DEPRESSION [None]
  - DYSPNOEA [None]
  - FATIGUE [None]
  - INSOMNIA [None]
  - IRRITABILITY [None]
  - NAUSEA [None]
  - PALPITATIONS [None]
  - PRURITUS [None]
  - SLEEP DISORDER [None]
  - TETANY [None]
  - VERTIGO [None]
  - VOMITING [None]
